FAERS Safety Report 14853705 (Version 1)
Quarter: 2018Q2

REPORT INFORMATION
  Report Type: Spontaneous
  Country: US (occurrence: US)
  Receive Date: 20180507
  Receipt Date: 20180507
  Transmission Date: 20180711
  Serious: No
  Sender: FDA-Public Use
  Company Number: US-GLAXOSMITHKLINE-US2018076458

PATIENT
  Sex: Female

DRUGS (1)
  1. COREG CR [Suspect]
     Active Substance: CARVEDILOL PHOSPHATE
     Indication: ATRIAL FIBRILLATION
     Dosage: 80 MG, QD
     Route: 048
     Dates: start: 2006

REACTIONS (2)
  - Product use in unapproved indication [Unknown]
  - Hypertonic bladder [Recovered/Resolved]
